FAERS Safety Report 19902947 (Version 1)
Quarter: 2021Q4

REPORT INFORMATION
  Report Type: Spontaneous
  Country: JP (occurrence: JP)
  Receive Date: 20211001
  Receipt Date: 20211001
  Transmission Date: 20220303
  Serious: Yes (Hospitalization, Other)
  Sender: FDA-Public Use
  Company Number: JP-SUN PHARMACEUTICAL INDUSTRIES LTD-2021RR-313072

PATIENT
  Age: 64 Year
  Sex: Female

DRUGS (3)
  1. LEVOFLOXACIN [Suspect]
     Active Substance: LEVOFLOXACIN
     Indication: Campylobacter infection
     Dosage: 500 MILLIGRAM, DAILY
     Route: 065
  2. CIPROFLOXACIN [Suspect]
     Active Substance: CIPROFLOXACIN
     Indication: Campylobacter infection
     Dosage: 1200 MILLIGRAM, DAILY
     Route: 048
  3. CIPROFLOXACIN [Suspect]
     Active Substance: CIPROFLOXACIN
     Indication: Campylobacter infection
     Dosage: 800 MILLIGRAM, DAILY
     Route: 042

REACTIONS (1)
  - Drug resistance [Unknown]
